FAERS Safety Report 6242012-1 (Version None)
Quarter: 2009Q2

REPORT INFORMATION
  Report Type: 
  Country: None (occurrence: None)
  Receive Date: 20090622
  Receipt Date: 20090610
  Transmission Date: 20091009
  Serious: Yes (Hospitalization)
  Sender: FDA-Public Use
  Company Number: SAL/IMIQUIMOD-03

PATIENT
  Sex: Male
  Weight: 98.4306 kg

DRUGS (17)
  1. IMIQUIMOD [Suspect]
     Indication: ACTINIC KERATOSIS
     Dosage: 1 APPL TWICE A WEEK, 060
     Dates: start: 20090318
  2. ALDARA [Suspect]
     Indication: ACTINIC KERATOSIS
     Dosage: 1 APPL TWICE A WEEK, 060
     Route: 061
     Dates: start: 20090318
  3. NORVASC [Concomitant]
  4. LISINOPRIL [Concomitant]
  5. PLAVIX [Concomitant]
  6. POTASSIUM CHLORIDE [Concomitant]
  7. ALLOPURINOL [Concomitant]
  8. ALDARA [Concomitant]
  9. BRIMONIDINE DROPS [Concomitant]
  10. COREG [Concomitant]
  11. CRESTOR [Concomitant]
  12. IMDUR [Concomitant]
  13. LASIX [Concomitant]
  14. LEXAPRO [Concomitant]
  15. TIMOLOL EYE DROPS [Concomitant]
  16. TRAVOPROST [Concomitant]
  17. PREDNISONE [Concomitant]

REACTIONS (5)
  - ATRIAL FIBRILLATION [None]
  - CHEST PAIN [None]
  - DIZZINESS [None]
  - FALL [None]
  - FEELING HOT [None]
